FAERS Safety Report 9252628 (Version 1)
Quarter: 2013Q2

REPORT INFORMATION
  Report Type: Spontaneous
  Country: ES (occurrence: ES)
  Receive Date: 20130424
  Receipt Date: 20130424
  Transmission Date: 20140414
  Serious: Yes (Other)
  Sender: FDA-Public Use
  Company Number: ES-PFIZER INC-2013124569

PATIENT
  Age: 39 Year
  Sex: Male

DRUGS (1)
  1. DALACIN [Suspect]
     Indication: TOOTH ABSCESS
     Dosage: 300 MG, 4X/DAY
     Route: 048
     Dates: start: 20130215, end: 20130222

REACTIONS (3)
  - Lip oedema [Recovered/Resolved]
  - Dysphagia [Recovered/Resolved]
  - Urticaria [Recovered/Resolved]
